FAERS Safety Report 8923253 (Version 4)
Quarter: 2013Q2

REPORT INFORMATION
  Report Type: Report from Study
  Country: AU (occurrence: AU)
  Receive Date: 20121123
  Receipt Date: 20130410
  Transmission Date: 20140414
  Serious: Yes (Hospitalization)
  Sender: FDA-Public Use
  Company Number: AU-JNJFOC-20121106971

PATIENT
  Age: 65 Year
  Sex: Male
  Weight: 89.7 kg

DRUGS (7)
  1. ABIRATERONE ACETATE [Suspect]
     Route: 048
  2. ABIRATERONE ACETATE [Suspect]
     Indication: PROSTATE CANCER METASTATIC
     Route: 048
     Dates: start: 20111115, end: 20121021
  3. PREDNISOLONE [Suspect]
     Indication: PROSTATE CANCER METASTATIC
     Route: 048
     Dates: start: 20111115
  4. INDAPAMIDE [Concomitant]
     Indication: HYPERTENSION
     Dates: start: 20111017
  5. SERTRALINE [Concomitant]
     Indication: DEPRESSION
     Dates: start: 20111017
  6. HYDRALAZINE [Concomitant]
     Indication: HYPERTENSION
     Dates: start: 20111017
  7. ZOLADEX [Concomitant]
     Indication: HORMONE THERAPY
     Dates: start: 20090820

REACTIONS (1)
  - Vomiting [Recovered/Resolved]
